FAERS Safety Report 4676985-5 (Version None)
Quarter: 2005Q2

REPORT INFORMATION
  Report Type: 
  Country: None (occurrence: None)
  Receive Date: 20050526
  Receipt Date: 20050516
  Transmission Date: 20051028
  Serious: Yes (Hospitalization)
  Sender: FDA-Public Use
  Company Number: 2005075709

PATIENT
  Age: 87 Year
  Sex: Male

DRUGS (4)
  1. ZITHROMAX [Suspect]
     Indication: ILL-DEFINED DISORDER
     Dosage: 250 MG (250 MG, DAILY), ORAL
     Route: 048
     Dates: start: 20050201, end: 20050217
  2. PREVISCAN (FLUINDIONE) [Concomitant]
     Indication: ARTERIOPATHIC DISEASE
     Dosage: 20 MG (*20 MG, DAILY), ORAL
     Route: 048
     Dates: start: 20040801, end: 20050203
  3. ROCEPHIN [Suspect]
     Indication: ILL-DEFINED DISORDER
     Dosage: 2GRAM (2 GRAM, DAILY), INTRAVENOUS
     Route: 042
     Dates: start: 20050127, end: 20050217
  4. PLAVIX [Concomitant]

REACTIONS (3)
  - DRUG INTERACTION [None]
  - INTERNATIONAL NORMALISED RATIO INCREASED [None]
  - PROTHROMBIN TIME SHORTENED [None]
